FAERS Safety Report 21500264 (Version 1)
Quarter: 2022Q4

REPORT INFORMATION
  Report Type: Spontaneous
  Country: US (occurrence: None)
  Receive Date: 20221024
  Receipt Date: 20221024
  Transmission Date: 20230113
  Serious: Yes (Other)
  Sender: FDA-Public Use
  Company Number: None

PATIENT
  Sex: Female

DRUGS (4)
  1. COSENTYX [Suspect]
     Active Substance: SECUKINUMAB
     Indication: Psoriasis
     Dosage: INJECT 2 PENS (300MG) UNDER THE SKIN (SUBCUTANEOUS INJECTION) EVERY 4 WEEKS AS DIRECTED?
     Route: 058
     Dates: start: 20220223
  2. COSENTYX [Suspect]
     Active Substance: SECUKINUMAB
     Dosage: OTHER QUANTITY : 2 PENS (300MG);?FREQUENCY : MONTHLY;?
     Route: 058
  3. CALCIUM\CHOLECALCIFEROL [Concomitant]
     Active Substance: CALCIUM\CHOLECALCIFEROL
  4. MULTIVITMIN TAB ADLT 50+ [Concomitant]

REACTIONS (1)
  - Malignant melanoma [None]
